FAERS Safety Report 9734118 (Version 2)
Quarter: 2014Q1

REPORT INFORMATION
  Report Type: Other
  Country: GE (occurrence: GE)
  Receive Date: 20131205
  Receipt Date: 20140102
  Transmission Date: 20141002
  Serious: Yes (Other)
  Sender: FDA-Public Use
  Company Number: GE-RB-061112-13

PATIENT
  Age: 39 Year
  Sex: Male

DRUGS (6)
  1. SUBUTEX [Suspect]
     Indication: PRODUCT USED FOR UNKNOWN INDICATION
     Dosage: 2 MG, 1-2 TIMES A DAY, FOR ABOUT 10 DAYS PER MONTH
     Route: 042
     Dates: start: 2003, end: 201106
  2. SUBOXONE TABLET [Suspect]
     Indication: PRODUCT USED FOR UNKNOWN INDICATION
     Dosage: START DOSE OF 2 MG
     Route: 065
     Dates: start: 20110615, end: 20110929
  3. SUBOXONE TABLET [Suspect]
     Dosage: MAX. DOSE WAS 16 MG DAILY
     Route: 060
     Dates: start: 2011, end: 2011
  4. CODEINE [Suspect]
     Indication: PRODUCT USED FOR UNKNOWN INDICATION
     Dosage: 4-5 TABLETS/DAY
     Route: 065
     Dates: end: 201106
  5. ALCOHOL [Suspect]
     Indication: PRODUCT USED FOR UNKNOWN INDICATION
     Dosage: UNKNOWN DOSING DETAILS
     Route: 065
  6. CARDIOMAGNYL [Concomitant]
     Indication: PRODUCT USED FOR UNKNOWN INDICATION
     Route: 065

REACTIONS (6)
  - Hypertensive crisis [Recovered/Resolved]
  - Substance abuse [Recovered/Resolved]
  - Intentional drug misuse [Recovered/Resolved]
  - Drug abuse [Recovered/Resolved]
  - Constipation [Recovered/Resolved]
  - Insomnia [Recovered/Resolved]
